FAERS Safety Report 16197627 (Version 1)
Quarter: 2019Q2

REPORT INFORMATION
  Report Type: Spontaneous
  Country: US (occurrence: US)
  Receive Date: 20190414
  Receipt Date: 20190414
  Transmission Date: 20190711
  Serious: Yes (Disabling)
  Sender: FDA-Public Use
  Company Number: None

PATIENT
  Age: 6 Year
  Sex: Male
  Weight: 20.7 kg

DRUGS (1)
  1. MIRALAX [Suspect]
     Active Substance: POLYETHYLENE GLYCOL 3350
     Indication: ENDOSCOPY
     Dates: start: 20171218, end: 20171219

REACTIONS (3)
  - Educational problem [None]
  - Anxiety [None]
  - Abnormal behaviour [None]

NARRATIVE: CASE EVENT DATE: 20171219
